FAERS Safety Report 6424366-6 (Version None)
Quarter: 2009Q4

REPORT INFORMATION
  Report Type: 
  Country: None (occurrence: None)
  Receive Date: 20091103
  Receipt Date: 20091021
  Transmission Date: 20100525
  Serious: Yes (Hospitalization)
  Sender: FDA-Public Use
  Company Number: ES-ELI_LILLY_AND_COMPANY-ES200910002592

PATIENT
  Sex: Male
  Weight: 72.2 kg

DRUGS (10)
  1. PEMETREXED [Suspect]
     Indication: NON-SMALL CELL LUNG CANCER
     Dosage: 500 MG/M2,  DAY ONE EVERY 21 DAYS
     Route: 042
     Dates: start: 20090806
  2. CISPLATIN [Suspect]
     Indication: NON-SMALL CELL LUNG CANCER
     Dosage: 75 MG/M2, DAY ONE EVERY 21 DAYS
     Route: 042
     Dates: start: 20090806
  3. CETUXIMAB [Suspect]
     Indication: NON-SMALL CELL LUNG CANCER
     Dosage: 400 MG, DAY 1 CYCLE 1 ONLY
     Route: 042
     Dates: start: 20090806, end: 20090806
  4. CETUXIMAB [Suspect]
     Dosage: 250 MG/M2, WEEKLY (1/W)
     Route: 042
  5. FOLIC ACID [Concomitant]
     Indication: PROPHYLAXIS
     Dates: start: 20090720
  6. GABAPENTIN [Concomitant]
     Indication: PAIN
     Dates: start: 20090701
  7. PANTOPRAZOLE [Concomitant]
     Indication: GASTRITIS PROPHYLAXIS
     Dosage: UNK, UNK
     Dates: start: 20090820
  8. OXYCODONE [Concomitant]
     Indication: PAIN
     Dosage: UNK, UNK
     Dates: start: 20090820, end: 20090923
  9. VITAMIN B-12 [Concomitant]
     Indication: PROPHYLAXIS
     Dates: start: 20090720
  10. DEXAMETHASONE [Concomitant]
     Indication: PROPHYLAXIS
     Dates: start: 20090805

REACTIONS (1)
  - BONE PAIN [None]
